FAERS Safety Report 5093964-7 (Version None)
Quarter: 2006Q3

REPORT INFORMATION
  Report Type: 
  Country: None (occurrence: None)
  Receive Date: 20060728
  Receipt Date: 20060414
  Transmission Date: 20061208
  Serious: No
  Sender: FDA-Public Use
  Company Number: 252467

PATIENT
  Age: 60 Year
  Sex: Male
  Weight: 92.5 kg

DRUGS (2)
  1. LEVEMIR [Suspect]
     Indication: INSULIN-REQUIRING TYPE II DIABETES MELLITUS
     Dosage: 10 IU, QD, SUBCUTANEOUS, SEE IMAGE
     Route: 058
     Dates: start: 20060413, end: 20060418
  2. GLUCOVANCE [Suspect]
     Indication: INSULIN-REQUIRING TYPE II DIABETES MELLITUS
     Dosage: 10 IU, QD, SUBCUTANEOUS
     Route: 058
     Dates: start: 20060413, end: 20060418

REACTIONS (1)
  - DIARRHOEA [None]
